FAERS Safety Report 8346710-5 (Version None)
Quarter: 2012Q2

REPORT INFORMATION
  Report Type: 
  Country: None (occurrence: None)
  Receive Date: 20120509
  Receipt Date: 20100422
  Transmission Date: 20120825
  Serious: No
  Sender: FDA-Public Use
  Company Number: US-TEVA-2010002361

PATIENT
  Sex: Female
  Weight: 58.112 kg

DRUGS (3)
  1. RITUXAN [Concomitant]
     Indication: NON-HODGKIN'S LYMPHOMA
  2. TREANDA [Suspect]
     Indication: NON-HODGKIN'S LYMPHOMA
     Route: 042
     Dates: start: 20100224
  3. NEXIUM [Concomitant]

REACTIONS (1)
  - HYPOTENSION [None]
